FAERS Safety Report 5471152-X (Version None)
Quarter: 2007Q3

REPORT INFORMATION
  Report Type: 
  Country: None (occurrence: None)
  Receive Date: 20070928
  Receipt Date: 20070914
  Transmission Date: 20080115
  Serious: Yes (Hospitalization)
  Sender: FDA-Public Use
  Company Number: GB-ROCHE-509289

PATIENT
  Age: 49 Year
  Sex: Female

DRUGS (3)
  1. PEGASYS [Suspect]
     Indication: CRYOGLOBULINAEMIA
     Route: 065
     Dates: start: 20070601, end: 20070608
  2. RIBAVIRIN [Suspect]
     Indication: CRYOGLOBULINAEMIA
     Route: 065
  3. UNSPECIFIED MEDICATIONS [Concomitant]

REACTIONS (2)
  - CENTRAL PONTINE MYELINOLYSIS [None]
  - HEPATITIS [None]
